FAERS Safety Report 9633145 (Version 2)
Quarter: 2013Q4

REPORT INFORMATION
  Report Type: Report from Study
  Country: BR (occurrence: BR)
  Receive Date: 20131019
  Receipt Date: 20131127
  Transmission Date: 20140711
  Serious: Yes (Hospitalization, Other)
  Sender: FDA-Public Use
  Company Number: BR-US-EMD SERONO, INC.-7243050

PATIENT
  Age: 62 Year
  Sex: Female

DRUGS (1)
  1. REBIF [Suspect]
     Indication: RELAPSING-REMITTING MULTIPLE SCLEROSIS
     Dates: start: 20041122

REACTIONS (9)
  - Ischaemia [Unknown]
  - Hypertension [Not Recovered/Not Resolved]
  - Cerebrovascular accident [Recovered/Resolved]
  - Micturition urgency [Unknown]
  - Confusional state [Unknown]
  - Sensation of heaviness [Unknown]
  - Gait disturbance [Unknown]
  - Coordination abnormal [Unknown]
  - Movement disorder [Unknown]
